FAERS Safety Report 13742243 (Version 1)
Quarter: 2017Q3

REPORT INFORMATION
  Report Type: Spontaneous
  Country: CN (occurrence: CN)
  Receive Date: 20170711
  Receipt Date: 20170711
  Transmission Date: 20171127
  Serious: Yes (Other)
  Sender: FDA-Public Use
  Company Number: CN-BAYER-2017-128749

PATIENT
  Age: 59 Year
  Sex: Male

DRUGS (1)
  1. STIVARGA [Suspect]
     Active Substance: REGORAFENIB
     Indication: COLORECTAL CANCER
     Dosage: 160 MG,DAILY DOSE
     Route: 048
     Dates: start: 201210, end: 201311

REACTIONS (2)
  - Colorectal cancer [None]
  - Metastases to lung [None]

NARRATIVE: CASE EVENT DATE: 201311
